FAERS Safety Report 11026386 (Version 1)
Quarter: 2015Q2

REPORT INFORMATION
  Report Type: Spontaneous
  Country: US (occurrence: US)
  Receive Date: 20150414
  Receipt Date: 20150414
  Transmission Date: 20150821
  Serious: No
  Sender: FDA-Public Use
  Company Number: US-BAYER-2015-122260

PATIENT
  Age: 86 Year
  Sex: Female
  Weight: 55 kg

DRUGS (4)
  1. VITAMIN C [Concomitant]
     Active Substance: ASCORBIC ACID
     Dosage: UNK
  2. TURMERIC [Concomitant]
     Active Substance: TURMERIC
     Dosage: UNK
  3. VITAMIN D [Concomitant]
     Active Substance: CHOLECALCIFEROL
     Dosage: UNK
  4. OXYTROL FOR WOMEN [Suspect]
     Active Substance: OXYBUTYNIN
     Indication: URINARY INCONTINENCE
     Dosage: 1 DOSE , EVERY FOUR DAYS
     Route: 061

REACTIONS (2)
  - Inappropriate schedule of drug administration [None]
  - Drug ineffective [Unknown]
